FAERS Safety Report 4936111-1 (Version None)
Quarter: 2006Q1

REPORT INFORMATION
  Report Type: 
  Country: None (occurrence: None)
  Receive Date: 20060307
  Receipt Date: 20051025
  Transmission Date: 20060701
  Serious: No
  Sender: FDA-Public Use
  Company Number: US-GLAXOSMITHKLINE-A0579554A

PATIENT
  Age: 58 Year
  Sex: Female

DRUGS (3)
  1. REQUIP [Suspect]
     Indication: RESTLESS LEGS SYNDROME
     Dosage: .25MG PER DAY
     Route: 048
     Dates: start: 20051001, end: 20051001
  2. PAXIL [Concomitant]
  3. L-THYROXINE [Concomitant]

REACTIONS (1)
  - SWOLLEN TONGUE [None]
